FAERS Safety Report 10059935 (Version 1)
Quarter: 2014Q2

REPORT INFORMATION
  Report Type: Spontaneous
  Country: US (occurrence: US)
  Receive Date: 20140404
  Receipt Date: 20140404
  Transmission Date: 20141212
  Serious: Yes (Other)
  Sender: FDA-Public Use
  Company Number: US-BAYER-2014-049825

PATIENT
  Age: 29 Year
  Sex: Female
  Weight: 78.01 kg

DRUGS (11)
  1. YASMIN [Suspect]
     Indication: HIRSUTISM
  2. YASMIN [Suspect]
     Indication: ACNE
  3. YASMIN [Suspect]
     Indication: TEARFULNESS
  4. YASMIN [Suspect]
     Indication: ABNORMAL BEHAVIOUR
  5. YASMIN [Suspect]
     Indication: POLYCYSTIC OVARIES
  6. PROTONIX [Concomitant]
  7. CITRUCEL [Concomitant]
     Indication: CONSTIPATION
  8. STOOL SOFTENER [Concomitant]
     Indication: CONSTIPATION
  9. LEVSIN [Concomitant]
     Indication: IRRITABLE BOWEL SYNDROME
  10. ZOFRAN [Concomitant]
  11. MOTRIN [Concomitant]
     Indication: PROCEDURAL PAIN

REACTIONS (2)
  - Cholecystectomy [None]
  - Cholecystitis chronic [None]
